FAERS Safety Report 22261013 (Version 1)
Quarter: 2023Q2

REPORT INFORMATION
  Report Type: Spontaneous
  Country: US (occurrence: US)
  Receive Date: 20230427
  Receipt Date: 20230427
  Transmission Date: 20230721
  Serious: No
  Sender: FDA-Public Use
  Company Number: US-009507513-2303FIN010061

PATIENT
  Age: 70 Year
  Sex: Male

DRUGS (3)
  1. KEYTRUDA [Suspect]
     Active Substance: PEMBROLIZUMAB
     Indication: Microsatellite instability cancer
     Dosage: 200 MILLIGRAM, Q3W
     Route: 042
  2. DEGARELIX [Concomitant]
     Active Substance: DEGARELIX
     Dosage: 240 MILLIGRAM, 2 SUBCUTANEOUS INJECTIONS
     Route: 058
  3. DEGARELIX [Concomitant]
     Active Substance: DEGARELIX
     Dosage: 80 MG MAINTENANCE DOSE GIVEN EVERY 4 WEEKS
     Route: 058

REACTIONS (1)
  - Lichenoid keratosis [Unknown]
